FAERS Safety Report 20702849 (Version 2)
Quarter: 2022Q2

REPORT INFORMATION
  Report Type: Spontaneous
  Country: IN (occurrence: IN)
  Receive Date: 20220412
  Receipt Date: 20220415
  Transmission Date: 20220720
  Serious: Yes (Other)
  Sender: FDA-Public Use
  Company Number: None

PATIENT
  Age: 70 Year
  Sex: Female

DRUGS (8)
  1. PREDNISOLONE [Suspect]
     Active Substance: PREDNISOLONE
     Indication: Anaplastic large-cell lymphoma
     Dosage: 40 MILLIGRAM/SQ. METER,DAY 1- DAY 7; CYCLICAL THERAPY,TABLET
     Route: 048
  2. PREDNISOLONE [Suspect]
     Active Substance: PREDNISOLONE
     Dosage: 40 MILLIGRAM/SQ. METER,CVP REGIMEN, DAY 1-DAY 5; CYCLICAL THERAPY,TABLET; 800 MG/M2; 4 CYCLES
     Route: 048
  3. VINCRISTINE [Suspect]
     Active Substance: VINCRISTINE
     Indication: Anaplastic large-cell lymphoma
     Dosage: 1 MILLIGRAM,DAY 1; CYCLICAL THERAPY
     Route: 042
  4. VINCRISTINE [Suspect]
     Active Substance: VINCRISTINE
     Dosage: 1.4 MILLIGRAM/SQ. METER,(TOP DOSE 2 MG) CVP REGIMEN, DAY 1; CYCLICAL THERAPY; 5.6 MG/M2 4 CYCLES
     Route: 042
  5. CYCLOPHOSPHAMIDE [Suspect]
     Active Substance: CYCLOPHOSPHAMIDE
     Indication: Anaplastic large-cell lymphoma
     Dosage: 750 MILLIGRAM/SQ. METER,DAY 1; CYCLICAL THERAPY; 3000 MG/M2 4 CYCLES
     Route: 042
  6. ETOPOSIDE [Suspect]
     Active Substance: ETOPOSIDE
     Indication: Anaplastic large-cell lymphoma
     Dosage: 100 MILLIGRAM/SQ. METER,DAY 1- DAY 3; CYCLICAL THERAPY; 900 MG/M2 3 CYCLES
     Route: 042
  7. ACYCLOVIR [Concomitant]
     Active Substance: ACYCLOVIR
     Indication: Product used for unknown indication
     Dosage: UNK
     Route: 065
  8. COTRIMOXAZOLE [Concomitant]
     Active Substance: SULFAMETHOXAZOLE\TRIMETHOPRIM
     Indication: Product used for unknown indication
     Dosage: UNK
     Route: 065

REACTIONS (3)
  - Hyponatraemia [Unknown]
  - Vomiting [Unknown]
  - Constipation [Unknown]
